FAERS Safety Report 21228407 (Version 1)
Quarter: 2022Q3

REPORT INFORMATION
  Report Type: Spontaneous
  Country: GB (occurrence: GB)
  Receive Date: 20220818
  Receipt Date: 20220818
  Transmission Date: 20221027
  Serious: Yes (Other)
  Sender: FDA-Public Use
  Company Number: None

PATIENT
  Age: 38 Year
  Sex: Female
  Weight: 83 kg

DRUGS (6)
  1. DOXYCYCLINE [Suspect]
     Active Substance: DOXYCYCLINE
     Indication: Product used for unknown indication
     Dosage: 100 MILLIGRAM, QD (TAKE TWO STRAIGHT AWAY THEN ONE CAPSULE DAILY FOR A TOTAL OF 5 DAYS)
     Route: 065
     Dates: start: 20220808
  2. DIAZEPAM [Concomitant]
     Active Substance: DIAZEPAM
     Indication: Seizure
     Dosage: 1 DOSAGE FORM, PRN (FOR NON EPILEPTIC ATTACKS)
     Route: 065
     Dates: start: 20220506
  3. LEVOTHYROXINE [Concomitant]
     Active Substance: LEVOTHYROXINE
     Dosage: 1 DOSAGE FORM, AM (TAKE EACH MORNING)
     Route: 065
     Dates: start: 20220510
  4. OTOMIZE [Concomitant]
     Dosage: 1 DOSAGE FORM (SPRAY INTO THE AFFECTED EAR)
     Route: 065
     Dates: start: 20220801, end: 20220808
  5. PROPRANOLOL [Concomitant]
     Active Substance: PROPRANOLOL HYDROCHLORIDE
     Dosage: 1 DOSAGE FORM, TID
     Route: 065
     Dates: start: 20220428
  6. VENLAFAXINE [Concomitant]
     Active Substance: VENLAFAXINE HYDROCHLORIDE
     Dosage: 2 DOSAGE FORM, BID (TAKE IN THE MORNING AND TAKE IN THE EVENING)
     Route: 065
     Dates: start: 20220428

REACTIONS (2)
  - Dyspnoea [Recovered/Resolved]
  - Rash [Recovered/Resolved]

NARRATIVE: CASE EVENT DATE: 20220810
